FAERS Safety Report 12420369 (Version 1)
Quarter: 2016Q2

REPORT INFORMATION
  Report Type: Spontaneous
  Country: GB (occurrence: GB)
  Receive Date: 20160531
  Receipt Date: 20160531
  Transmission Date: 20160815
  Serious: Yes (Other)
  Sender: FDA-Public Use
  Company Number: GB-JNJFOC-20160518817

PATIENT
  Sex: Male
  Weight: 90 kg

DRUGS (9)
  1. METFORMIN [Concomitant]
     Active Substance: METFORMIN HYDROCHLORIDE
     Dosage: ON THIS DRUG FOR LONG TIME PRIOR TO SGLT2
     Route: 065
  2. GLICLAZIDE [Concomitant]
     Active Substance: GLICLAZIDE
     Dosage: ON THIS DRUG FOR LONG TIME PRIOR TO SGLT2
     Route: 065
  3. OMEPRAZOLE. [Concomitant]
     Active Substance: OMEPRAZOLE
     Dosage: ON THIS DRUG FOR LONG TIME PRIOR TO SGLT2
     Route: 065
  4. ATORVASTATIN [Concomitant]
     Active Substance: ATORVASTATIN
     Dosage: ON THIS DRUG FOR LONG TIME PRIOR TO SGLT2
     Route: 065
  5. INVOKANA [Suspect]
     Active Substance: CANAGLIFLOZIN
     Indication: TYPE 2 DIABETES MELLITUS
     Route: 065
     Dates: start: 20150915, end: 20151026
  6. ASPIRIN. [Concomitant]
     Active Substance: ASPIRIN
     Dosage: ON THIS DRUG FOR LONG TIME PRIOR TO SGLT2
     Route: 065
  7. PERINDOPRIL [Concomitant]
     Active Substance: PERINDOPRIL
     Dosage: ON THIS DRUG FOR LONG TIME PRIOR TO SGLT2
     Route: 065
  8. TENORMIN [Concomitant]
     Active Substance: ATENOLOL
     Dosage: ON THIS DRUG FOR LONG TIME PRIOR TO SGLT2
     Route: 065
  9. GABAPENTIN. [Concomitant]
     Active Substance: GABAPENTIN
     Dosage: ON THIS DRUG FOR LONG TIME PRIOR TO SGLT2
     Route: 065

REACTIONS (4)
  - Dizziness [Recovered/Resolved]
  - Feeling abnormal [Recovered/Resolved]
  - Fatigue [Unknown]
  - Malaise [Recovered/Resolved]
